FAERS Safety Report 4391454-8 (Version None)
Quarter: 2004Q3

REPORT INFORMATION
  Report Type: 
  Country: None (occurrence: None)
  Receive Date: 20040707
  Receipt Date: 20040624
  Transmission Date: 20050211
  Serious: Yes (Other)
  Sender: FDA-Public Use
  Company Number: GB-GLAXOSMITHKLINE-B0336840A

PATIENT
  Age: 49 Year
  Sex: Female
  Weight: 96.82 kg

DRUGS (10)
  1. AVANDIA [Suspect]
     Indication: DIABETES MELLITUS
     Route: 065
     Dates: start: 20040607, end: 20040608
  2. ROFECOXIB [Concomitant]
     Dosage: 1UNIT PER DAY
     Route: 065
     Dates: start: 20000131
  3. CODEINE PHOSPHATE [Concomitant]
     Dosage: 2TAB FOUR TIMES PER DAY
     Route: 065
     Dates: start: 20000215
  4. CO-PROXAMOL [Concomitant]
     Route: 065
     Dates: start: 20000215
  5. METFORMIN HCL [Concomitant]
     Dosage: 1UNIT THREE TIMES PER DAY
     Route: 065
     Dates: start: 20000331
  6. ATORVASTATIN CALCIUM [Concomitant]
     Dosage: 1UNIT PER DAY
     Route: 065
     Dates: start: 20000418
  7. AMITRIPTYLINE HYDROCHLORIDE [Concomitant]
     Dosage: 3UNIT PER DAY
     Route: 065
     Dates: start: 20010521
  8. ERYTHROMYCIN [Concomitant]
     Dosage: 1UNIT FOUR TIMES PER DAY
     Route: 065
     Dates: end: 20040526
  9. AQUEOUS CREAM BP [Concomitant]
     Route: 065
     Dates: start: 19940112
  10. INSULIN NORDISK MIXTARD (PORK) [Concomitant]
     Route: 065
     Dates: start: 19960112

REACTIONS (1)
  - ECZEMA [None]
